FAERS Safety Report 10569721 (Version 5)
Quarter: 2016Q1

REPORT INFORMATION
  Report Type: Spontaneous
  Country: DE (occurrence: DE)
  Receive Date: 20141107
  Receipt Date: 20160325
  Transmission Date: 20160525
  Serious: Yes (Hospitalization, Other)
  Sender: FDA-Public Use
  Company Number: DE-AMGEN-DEUSP2014085436

PATIENT
  Age: 65 Year
  Sex: Male

DRUGS (6)
  1. PEGFILGRASTIM [Suspect]
     Active Substance: PEGFILGRASTIM
     Indication: B-CELL LYMPHOMA
     Dosage: 6 MG, Q3W
     Route: 058
     Dates: start: 20141025
  2. PREDNISOLONE. [Suspect]
     Active Substance: PREDNISOLONE
     Indication: B-CELL LYMPHOMA
     Dosage: 100 MG, Q3W
     Route: 048
     Dates: start: 20141022
  3. DOXORUBICINE [Suspect]
     Active Substance: DOXORUBICIN
     Indication: B-CELL LYMPHOMA
     Dosage: 103 MG, Q3W
     Route: 042
     Dates: start: 20141023
  4. VINCRISTINE [Suspect]
     Active Substance: VINCRISTINE
     Indication: B-CELL LYMPHOMA
     Dosage: 4.12 MG, Q3W
     Route: 042
     Dates: start: 20141024
  5. RITUXIMAB [Suspect]
     Active Substance: RITUXIMAB
     Indication: B-CELL LYMPHOMA
     Dosage: 772.5 MG, Q3W
     Route: 042
     Dates: start: 20141022
  6. CYCLOPHOSPHAMIDE. [Suspect]
     Active Substance: CYCLOPHOSPHAMIDE
     Indication: B-CELL LYMPHOMA
     Dosage: 1545 MG, Q3W
     Route: 042
     Dates: start: 20141023

REACTIONS (2)
  - Thrombocytopenia [Recovered/Resolved]
  - Embolism [Recovered/Resolved]

NARRATIVE: CASE EVENT DATE: 20141024
